FAERS Safety Report 6464737-5 (Version None)
Quarter: 2009Q4

REPORT INFORMATION
  Report Type: 
  Country: None (occurrence: None)
  Receive Date: 20091201
  Receipt Date: 20091120
  Transmission Date: 20100525
  Serious: Yes (Hospitalization)
  Sender: FDA-Public Use
  Company Number: US-JNJFOC-20091104267

PATIENT
  Sex: Female
  Weight: 68.95 kg

DRUGS (12)
  1. INFLIXIMAB [Suspect]
     Route: 042
     Dates: start: 20080801, end: 20090925
  2. INFLIXIMAB [Suspect]
     Route: 042
     Dates: start: 20080801, end: 20090925
  3. INFLIXIMAB [Suspect]
     Indication: CROHN'S DISEASE
     Route: 042
     Dates: start: 20080801, end: 20090925
  4. 5-AMINOSALICYLIC ACID [Suspect]
     Indication: DRUG USE FOR UNKNOWN INDICATION
     Route: 048
  5. VITAMIN D [Concomitant]
     Dosage: 400 UNITS
     Route: 048
  6. FISH OIL [Concomitant]
  7. MULTI-VITAMINS [Concomitant]
     Route: 048
  8. ELIDEL [Concomitant]
     Indication: PSORIASIS
     Route: 061
  9. TRIAMCINOLONE [Concomitant]
     Indication: RASH PRURITIC
     Route: 061
  10. ANTIHISTAMINES [Concomitant]
     Indication: PREMEDICATION
  11. TYLENOL (CAPLET) [Concomitant]
     Indication: PYREXIA
  12. TYLENOL (CAPLET) [Concomitant]
     Indication: PAIN

REACTIONS (3)
  - LOWER GASTROINTESTINAL HAEMORRHAGE [None]
  - PSORIASIS [None]
  - URTICARIA [None]
